FAERS Safety Report 16439879 (Version 1)
Quarter: 2019Q3

REPORT INFORMATION
  Report Type: Spontaneous
  Country: US (occurrence: US)
  Receive Date: 20190615
  Receipt Date: 20190615
  Transmission Date: 20191004
  Serious: Yes (Disabling, Other)
  Sender: FDA-Public Use
  Company Number: None

PATIENT
  Age: 65 Year
  Sex: Female
  Weight: 114.75 kg

DRUGS (11)
  1. XANAX [Concomitant]
     Active Substance: ALPRAZOLAM
  2. AMIODARONE [Concomitant]
     Active Substance: AMIODARONE
  3. POTASSIUM CHLORIDE EXTENDED RELEASE [Suspect]
     Active Substance: POTASSIUM CHLORIDE
     Indication: HYPOKALAEMIA
     Dosage: ?          QUANTITY:90 TABLET(S);OTHER FREQUENCY:8 PER DAY;?
     Route: 048
     Dates: start: 20190522, end: 20190615
  4. PLAVIX [Concomitant]
     Active Substance: CLOPIDOGREL BISULFATE
  5. XARELTO [Concomitant]
     Active Substance: RIVAROXABAN
  6. METROPOLOL [Concomitant]
     Active Substance: METOPROLOL
  7. DIOVAN [Concomitant]
     Active Substance: VALSARTAN
  8. POTASSIUM CHLORIDE. [Concomitant]
     Active Substance: POTASSIUM CHLORIDE
  9. LEVOTHIROXINE [Concomitant]
  10. ACETAMINOPHEN. [Concomitant]
     Active Substance: ACETAMINOPHEN
  11. VITAMIN D [Concomitant]
     Active Substance: VITAMIN D NOS

REACTIONS (3)
  - Hypokalaemia [None]
  - Product residue present [None]
  - Drug ineffective [None]

NARRATIVE: CASE EVENT DATE: 20190612
